APPROVED DRUG PRODUCT: EXEMESTANE
Active Ingredient: EXEMESTANE
Strength: 25MG
Dosage Form/Route: TABLET;ORAL
Application: A202602 | Product #001 | TE Code: AB
Applicant: ZYDUS PHARMACEUTICALS USA INC
Approved: Oct 3, 2018 | RLD: No | RS: No | Type: RX